FAERS Safety Report 15944706 (Version 2)
Quarter: 2019Q1

REPORT INFORMATION
  Report Type: Report from Study
  Country: US (occurrence: US)
  Receive Date: 20190211
  Receipt Date: 20190328
  Transmission Date: 20190417
  Serious: Yes (Other)
  Sender: FDA-Public Use
  Company Number: US-ROCHE-2255898

PATIENT
  Age: 35 Year
  Sex: Male
  Weight: 119.4 kg

DRUGS (7)
  1. WELLBUTRIN [Concomitant]
     Active Substance: BUPROPION HYDROCHLORIDE
     Dosage: ONGOING:YES
     Route: 065
  2. FLEXERIL [Concomitant]
     Active Substance: CYCLOBENZAPRINE HYDROCHLORIDE
     Indication: MUSCLE SPASMS
     Dosage: ONGOING:YES
     Route: 065
  3. OCREVUS [Suspect]
     Active Substance: OCRELIZUMAB
     Indication: RELAPSING-REMITTING MULTIPLE SCLEROSIS
     Dosage: 1ST OCREVUS DOSE ;ONGOING: NO
     Route: 065
     Dates: start: 20180719, end: 20180719
  4. MOTRIN [Concomitant]
     Active Substance: IBUPROFEN
     Indication: INFLAMMATION
     Dosage: ONGOING:YES
     Route: 065
  5. LEXAPRO [Concomitant]
     Active Substance: ESCITALOPRAM OXALATE
     Dosage: ONGOING:YES
     Route: 065
  6. OCREVUS [Suspect]
     Active Substance: OCRELIZUMAB
     Dosage: ONGOING:YES
     Route: 065
     Dates: start: 20180802
  7. LYRICA [Concomitant]
     Active Substance: PREGABALIN
     Indication: NEUROPATHY PERIPHERAL
     Dosage: ONGOING:YES
     Route: 065

REACTIONS (4)
  - Multiple sclerosis [Not Recovered/Not Resolved]
  - Neuropathy peripheral [Not Recovered/Not Resolved]
  - Pharyngitis bacterial [Not Recovered/Not Resolved]
  - B-lymphocyte count decreased [Unknown]

NARRATIVE: CASE EVENT DATE: 20180802
